FAERS Safety Report 4632271-0 (Version None)
Quarter: 2005Q2

REPORT INFORMATION
  Report Type: 
  Country: None (occurrence: None)
  Receive Date: 20050411
  Receipt Date: 20050330
  Transmission Date: 20051028
  Serious: Yes (Other)
  Sender: FDA-Public Use
  Company Number: US-SANOFI-SYNTHELABO-A03200500892

PATIENT
  Sex: Female
  Weight: 75.8 kg

DRUGS (5)
  1. ELOXATIN [Suspect]
     Route: 042
     Dates: start: 20050328, end: 20050328
  2. AVASTIN [Concomitant]
     Dosage: UNK
     Route: 042
  3. XELODA [Concomitant]
     Dosage: UNK
     Route: 048
  4. ALOXI [Concomitant]
     Dosage: UNK
     Route: 065
     Dates: start: 20050328
  5. DEXAMETHASONE [Concomitant]
     Route: 042
     Dates: start: 20050328

REACTIONS (1)
  - PARALYSIS [None]
